FAERS Safety Report 11904083 (Version 2)
Quarter: 2016Q2

REPORT INFORMATION
  Report Type: Spontaneous
  Country: US (occurrence: US)
  Receive Date: 20160111
  Receipt Date: 20160414
  Transmission Date: 20160815
  Serious: No
  Sender: FDA-Public Use
  Company Number: US-AMGEN-USASP2016001479

PATIENT
  Age: 65 Year
  Sex: Female

DRUGS (19)
  1. ALEVE [Concomitant]
     Active Substance: NAPROXEN SODIUM
     Dosage: UNK
  2. CINNAMON                           /01647501/ [Concomitant]
     Active Substance: CINNAMON
     Dosage: UNK
  3. ISOSORBIDE. [Concomitant]
     Active Substance: ISOSORBIDE
  4. LOSARTAN                           /01121602/ [Concomitant]
     Active Substance: LOSARTAN
  5. POTASSIUM [Concomitant]
     Active Substance: POTASSIUM
  6. RANEXA [Concomitant]
     Active Substance: RANOLAZINE
  7. METOPROLOL                         /00376902/ [Concomitant]
     Active Substance: METOPROLOL
  8. VITAMIN B12 [Concomitant]
     Active Substance: CYANOCOBALAMIN
  9. LEVOTHYROXINE                      /00068002/ [Concomitant]
  10. PLAVIX [Concomitant]
     Active Substance: CLOPIDOGREL BISULFATE
  11. SINGULAIR [Concomitant]
     Active Substance: MONTELUKAST SODIUM
  12. SUCRALFATE. [Concomitant]
     Active Substance: SUCRALFATE
  13. ENBREL [Suspect]
     Active Substance: ETANERCEPT
     Indication: RHEUMATOID ARTHRITIS
     Dosage: 50 MG, QWK
     Route: 058
     Dates: start: 20151124
  14. GABAPENTIN. [Concomitant]
     Active Substance: GABAPENTIN
  15. VESICARE [Concomitant]
     Active Substance: SOLIFENACIN SUCCINATE
  16. VITAMIN C [Concomitant]
     Active Substance: ASCORBIC ACID
     Dosage: UNK
  17. ASPIRIN 81 [Concomitant]
     Active Substance: ASPIRIN
     Dosage: UNK
  18. BILBERRY                           /01397601/ [Concomitant]
     Active Substance: BILBERRY
  19. LANTUS [Concomitant]
     Active Substance: INSULIN GLARGINE

REACTIONS (3)
  - Hot flush [Not Recovered/Not Resolved]
  - Skin induration [Not Recovered/Not Resolved]
  - Rash [Not Recovered/Not Resolved]

NARRATIVE: CASE EVENT DATE: 20151124
